FAERS Safety Report 24891489 (Version 1)
Quarter: 2025Q1

REPORT INFORMATION
  Report Type: Spontaneous
  Country: US (occurrence: US)
  Receive Date: 20250127
  Receipt Date: 20250127
  Transmission Date: 20250409
  Serious: No
  Sender: PFIZER
  Company Number: US-PFIZER INC-202500017596

PATIENT
  Age: 60 Year
  Sex: Female

DRUGS (5)
  1. XELJANZ [Suspect]
     Active Substance: TOFACITINIB CITRATE
     Dosage: 5 MG, 2X/DAY (5 MG 1 TABLET IN THE MORNING AND AT BEDTIME)
  2. PREGABALIN [Concomitant]
     Active Substance: PREGABALIN
  3. TAURINE [Concomitant]
     Active Substance: TAURINE
  4. LISINOPRIL [Concomitant]
     Active Substance: LISINOPRIL
  5. NAPROXEN [Concomitant]
     Active Substance: NAPROXEN

REACTIONS (1)
  - Condition aggravated [Unknown]
